FAERS Safety Report 12169204 (Version 1)
Quarter: 2016Q1

REPORT INFORMATION
  Report Type: Spontaneous
  Country: US (occurrence: US)
  Receive Date: 20160310
  Receipt Date: 20160310
  Transmission Date: 20160526
  Serious: Yes (Hospitalization, Other)
  Sender: FDA-Public Use
  Company Number: US-DSJP-DSU-2015-134069

PATIENT

DRUGS (2)
  1. BENICAR [Suspect]
     Active Substance: OLMESARTAN MEDOXOMIL
     Indication: HYPERTENSION
     Dosage: 40 MG, QD
     Dates: start: 2007, end: 2010
  2. NAPROXEN. [Concomitant]
     Active Substance: NAPROXEN
     Indication: GASTROOESOPHAGEAL REFLUX DISEASE
     Dosage: 500 MG,QD
     Dates: start: 2007

REACTIONS (5)
  - Acute kidney injury [Unknown]
  - Coma [Recovered/Resolved]
  - Hiatus hernia [Unknown]
  - Respiratory failure [Unknown]
  - Malabsorption [Not Recovered/Not Resolved]

NARRATIVE: CASE EVENT DATE: 2009
